FAERS Safety Report 20574019 (Version 3)
Quarter: 2022Q1

REPORT INFORMATION
  Report Type: Other
  Country: CA (occurrence: None)
  Receive Date: 20220309
  Receipt Date: 20220329
  Transmission Date: 20220424
  Serious: Yes (Life-Threatening, Hospitalization, Other)
  Sender: FDA-Public Use
  Company Number: CA-ROCHE-3045979

PATIENT
  Age: 49 Year
  Sex: Male
  Weight: 53 kg

DRUGS (40)
  1. ACTEMRA [Suspect]
     Active Substance: TOCILIZUMAB
     Indication: Rheumatoid arthritis
     Route: 042
     Dates: start: 20180925
  2. ACTEMRA [Suspect]
     Active Substance: TOCILIZUMAB
     Route: 042
     Dates: start: 20180925, end: 20181120
  3. ACTEMRA [Suspect]
     Active Substance: TOCILIZUMAB
     Route: 042
  4. ACTEMRA [Suspect]
     Active Substance: TOCILIZUMAB
     Route: 042
     Dates: start: 20210316
  5. ACETAMINOPHEN [Concomitant]
     Active Substance: ACETAMINOPHEN
     Route: 048
  6. ACETAMINOPHEN\OXYCODONE HYDROCHLORIDE [Concomitant]
     Active Substance: ACETAMINOPHEN\OXYCODONE HYDROCHLORIDE
     Route: 048
  7. AMLODIPINE [Concomitant]
     Active Substance: AMLODIPINE BESYLATE
     Route: 048
  8. CALCIUM CARBONATE [Concomitant]
     Active Substance: CALCIUM CARBONATE
  9. CELEBREX [Concomitant]
     Active Substance: CELECOXIB
  10. DIAZEPAM [Concomitant]
     Active Substance: DIAZEPAM
     Dosage: BEDTIME
     Route: 048
  11. DILAUDID [Concomitant]
     Active Substance: HYDROMORPHONE HYDROCHLORIDE
  12. DIMENHYDRINATE [Concomitant]
     Active Substance: DIMENHYDRINATE
     Route: 048
  13. DIPHENHYDRAMINE [Concomitant]
     Active Substance: DIPHENHYDRAMINE
     Route: 048
  14. DIVALPROEX SODIUM [Concomitant]
     Active Substance: DIVALPROEX SODIUM
  15. DULCOLAX (BISACODYL) [Concomitant]
     Active Substance: BISACODYL
     Route: 054
  16. GABAPENTIN [Concomitant]
     Active Substance: GABAPENTIN
     Route: 048
  17. GLUCAGON [Concomitant]
     Active Substance: GLUCAGON
     Route: 058
  18. GRAVOL [Concomitant]
     Active Substance: DIMENHYDRINATE
  19. INSULIN NOS [Concomitant]
     Active Substance: INSULIN NOS
  20. LACTULOSE [Concomitant]
     Active Substance: LACTULOSE
  21. LANTUS [Concomitant]
     Active Substance: INSULIN GLARGINE
  22. LEVOTHYROXINE SODIUM [Concomitant]
     Active Substance: LEVOTHYROXINE SODIUM
  23. LIPITOR [Concomitant]
     Active Substance: ATORVASTATIN CALCIUM
  24. MOXIFLOXACIN [Concomitant]
     Active Substance: MOXIFLOXACIN
  25. NOVORAPID [Concomitant]
     Active Substance: INSULIN ASPART
  26. PERCOCET [Concomitant]
     Active Substance: ACETAMINOPHEN\OXYCODONE HYDROCHLORIDE
     Dosage: 5-325 NG
  27. PREDNISONE [Concomitant]
     Active Substance: PREDNISONE
  28. QUINAPRIL [Concomitant]
     Active Substance: QUINAPRIL
     Route: 048
  29. RANITIDINE [Concomitant]
     Active Substance: RANITIDINE
  30. RIVAROXABAN [Concomitant]
     Active Substance: RIVAROXABAN
  31. ROSUVASTATIN [Concomitant]
     Active Substance: ROSUVASTATIN
  32. SENOKOT [Concomitant]
     Active Substance: SENNOSIDES
  33. SYNTHROID [Concomitant]
     Active Substance: LEVOTHYROXINE SODIUM
  34. TAMSULOSIN [Concomitant]
     Active Substance: TAMSULOSIN
  35. TEMAZEPAM [Concomitant]
     Active Substance: TEMAZEPAM
     Route: 048
  36. TESTOSTERONE [Concomitant]
     Active Substance: TESTOSTERONE
  37. VALTREX [Concomitant]
     Active Substance: VALACYCLOVIR HYDROCHLORIDE
  38. WELLBUTRIN [Concomitant]
     Active Substance: BUPROPION HYDROCHLORIDE
  39. XARELTO [Concomitant]
     Active Substance: RIVAROXABAN
  40. ZOPICLONE [Concomitant]
     Active Substance: ZOPICLONE

REACTIONS (7)
  - Arthritis bacterial [Recovered/Resolved]
  - Ulcerative keratitis [Unknown]
  - Arthropathy [Unknown]
  - Eye disorder [Unknown]
  - Carpal tunnel syndrome [Unknown]
  - Skin ulcer [Unknown]
  - Weight decreased [Unknown]

NARRATIVE: CASE EVENT DATE: 20181213
